FAERS Safety Report 9917964 (Version 1)
Quarter: 2014Q1

REPORT INFORMATION
  Report Type: Spontaneous
  Country: US (occurrence: US)
  Receive Date: 20140222
  Receipt Date: 20140222
  Transmission Date: 20141002
  Serious: No
  Sender: FDA-Public Use
  Company Number: US-009507513-1402USA010147

PATIENT
  Age: 19 Year
  Sex: Female
  Weight: 85.26 kg

DRUGS (3)
  1. IMPLANON [Suspect]
     Indication: CONTRACEPTION
     Dosage: 1 ROD, STRENGTH 68
     Route: 059
     Dates: start: 20100809
  2. TRAZODONE HYDROCHLORIDE [Concomitant]
  3. SEROQUEL [Concomitant]

REACTIONS (4)
  - Medical device complication [Unknown]
  - Device difficult to use [Unknown]
  - Device deployment issue [Unknown]
  - Incorrect drug administration duration [Unknown]
